FAERS Safety Report 8008919-X (Version None)
Quarter: 2011Q4

REPORT INFORMATION
  Report Type: 
  Country: None (occurrence: None)
  Receive Date: 20111227
  Receipt Date: 20111222
  Transmission Date: 20120403
  Serious: Yes (Hospitalization, Congenital Anomaly, Other)
  Sender: FDA-Public Use
  Company Number: US-PFIZER INC-2011104755

PATIENT
  Sex: Male
  Weight: 3.6 kg

DRUGS (6)
  1. ZOLOFT [Suspect]
     Dosage: 50 MG, 1X/DAY
     Route: 064
     Dates: start: 20001003
  2. ZOLOFT [Suspect]
     Indication: DEPRESSION
     Dosage: 100 MG, 1X/DAY
     Route: 064
     Dates: start: 19990101
  3. SYNTHROID [Concomitant]
     Indication: HYPOTHYROIDISM
     Dosage: 100 UG, UNK
     Route: 064
     Dates: start: 20000101
  4. MULTI-VITAMINS [Concomitant]
     Dosage: UNK
     Route: 064
     Dates: start: 20000101
  5. ZOLOFT [Suspect]
     Dosage: 100 MG, 1X/DAY
     Route: 064
     Dates: start: 20000106
  6. ZOLOFT [Suspect]
     Dosage: 50 MG, 1X/DAY
     Route: 064
     Dates: start: 20001003

REACTIONS (9)
  - ANAL ATRESIA [None]
  - FOETAL EXPOSURE DURING PREGNANCY [None]
  - CHORDEE [None]
  - PEYRONIE'S DISEASE [None]
  - VACTERL SYNDROME [None]
  - ATRIAL SEPTAL DEFECT [None]
  - HYPOSPADIAS [None]
  - RENAL CYST [None]
  - VESICOURETERIC REFLUX [None]
